FAERS Safety Report 17510561 (Version 1)
Quarter: 2020Q1

REPORT INFORMATION
  Report Type: Spontaneous
  Country: US (occurrence: US)
  Receive Date: 20200306
  Receipt Date: 20200306
  Transmission Date: 20200409
  Serious: No
  Sender: FDA-Public Use
  Company Number: None

PATIENT
  Age: 13 Year
  Sex: Female

DRUGS (4)
  1. OXCARBAZAPINE [Suspect]
     Active Substance: OXCARBAZEPINE
     Indication: BIPOLAR DISORDER
     Route: 048
     Dates: start: 20200225, end: 20200227
  2. OXCARBAZAPINE 150MG TABLET [Concomitant]
     Dates: start: 20200225, end: 20200227
  3. ABILIFY [Concomitant]
     Active Substance: ARIPIPRAZOLE
  4. CONCERTA  TABLET [Concomitant]

REACTIONS (4)
  - Skin burning sensation [None]
  - Pruritus [None]
  - Throat irritation [None]
  - Erythema [None]

NARRATIVE: CASE EVENT DATE: 20200227
